FAERS Safety Report 9073751 (Version 1)
Quarter: 2013Q1

REPORT INFORMATION
  Report Type: Spontaneous
  Country: CA (occurrence: CA)
  Receive Date: 20130129
  Receipt Date: 20130129
  Transmission Date: 20140127
  Serious: Yes (Hospitalization)
  Sender: FDA-Public Use
  Company Number: CA-AMGEN-CANSP2013005054

PATIENT
  Age: 48 Year
  Sex: Female

DRUGS (1)
  1. ENBREL [Suspect]
     Indication: PSORIASIS
     Dosage: UNK UNK, 2 TIMES/WK
     Route: 058
     Dates: start: 20110905, end: 201209

REACTIONS (4)
  - Hepatic enzyme increased [Not Recovered/Not Resolved]
  - Cystitis [Recovered/Resolved]
  - Diabetes mellitus [Not Recovered/Not Resolved]
  - Blood potassium decreased [Recovered/Resolved]
